FAERS Safety Report 15322221 (Version 1)
Quarter: 2018Q3

REPORT INFORMATION
  Report Type: Report from Study
  Country: US (occurrence: US)
  Receive Date: 20180827
  Receipt Date: 20180827
  Transmission Date: 20181010
  Serious: Yes (Other)
  Sender: FDA-Public Use
  Company Number: PHHY2018US078489

PATIENT
  Age: 43 Year
  Sex: Female

DRUGS (1)
  1. GILENYA [Suspect]
     Active Substance: FINGOLIMOD HYDROCHLORIDE
     Indication: PRODUCT USED FOR UNKNOWN INDICATION
     Dosage: 1 MG, QD
     Route: 048
     Dates: start: 20180523

REACTIONS (4)
  - Dizziness [Recovered/Resolved]
  - Headache [Recovered/Resolved]
  - Incorrect dose administered [Unknown]
  - Asthenia [Recovered/Resolved]

NARRATIVE: CASE EVENT DATE: 20180523
